FAERS Safety Report 23477733 (Version 1)
Quarter: 2024Q1

REPORT INFORMATION
  Report Type: Report from Study
  Country: US (occurrence: US)
  Receive Date: 20240204
  Receipt Date: 20240204
  Transmission Date: 20240409
  Serious: No
  Sender: FDA-Public Use
  Company Number: US-EXELIXIS-CABO-23066324

PATIENT
  Age: 57 Year
  Sex: Male

DRUGS (8)
  1. CABOMETYX [Suspect]
     Active Substance: CABOZANTINIB S-MALATE
     Indication: Malignant melanoma
     Dosage: 40 MG, QD
     Dates: start: 20230627, end: 20230730
  2. CABOMETYX [Suspect]
     Active Substance: CABOZANTINIB S-MALATE
     Indication: Metastases to lung
     Dosage: 20 MG, QD
     Dates: start: 20230825
  3. ATORVASTATIN [Concomitant]
     Active Substance: ATORVASTATIN
  4. ELIQUIS [Concomitant]
     Active Substance: APIXABAN
  5. METFORMIN [Concomitant]
     Active Substance: METFORMIN HYDROCHLORIDE
  6. VALSARTAN [Concomitant]
     Active Substance: VALSARTAN
  7. JARDIANCE [Concomitant]
     Active Substance: EMPAGLIFLOZIN
  8. TRAZODONE [Concomitant]
     Active Substance: TRAZODONE HYDROCHLORIDE

REACTIONS (18)
  - Blister [Not Recovered/Not Resolved]
  - Genital blister [Not Recovered/Not Resolved]
  - Paraesthesia [Recovered/Resolved]
  - Skin wrinkling [Recovered/Resolved]
  - Joint swelling [Not Recovered/Not Resolved]
  - Joint stiffness [Not Recovered/Not Resolved]
  - Blood pressure increased [Unknown]
  - Skin ulcer [Unknown]
  - Stomatitis [Not Recovered/Not Resolved]
  - Diarrhoea [Not Recovered/Not Resolved]
  - Constipation [Not Recovered/Not Resolved]
  - Dyspepsia [Not Recovered/Not Resolved]
  - Nausea [Not Recovered/Not Resolved]
  - Dizziness [Not Recovered/Not Resolved]
  - Arthralgia [Not Recovered/Not Resolved]
  - Pain in extremity [Not Recovered/Not Resolved]
  - Muscle spasms [Not Recovered/Not Resolved]
  - Off label use [Unknown]

NARRATIVE: CASE EVENT DATE: 20230724
